FAERS Safety Report 5346745-0 (Version None)
Quarter: 2007Q2

REPORT INFORMATION
  Report Type: 
  Country: None (occurrence: None)
  Receive Date: 20070604
  Receipt Date: 20070521
  Transmission Date: 20071010
  Serious: Yes (Life-Threatening, Hospitalization, Other)
  Sender: FDA-Public Use
  Company Number: CERZ-11616

PATIENT
  Age: 54 Year
  Sex: Female
  Weight: 74 kg

DRUGS (7)
  1. CEREZYME [Suspect]
     Indication: GAUCHER'S DISEASE
     Dosage: 60 U/KG Q2WKS IV
     Route: 042
     Dates: start: 19971215
  2. ENDOTELON. MFR: LABAZ [Concomitant]
  3. LOZOL [Concomitant]
  4. ALPRAZOLAM [Concomitant]
  5. STABLON. MFR: ARDIX LABORATOIRE [Concomitant]
  6. MOPRAL. MFR: ASTRA PHARMACEUTICAL PRODUCTS, INC. [Concomitant]
  7. LEVOTHYROX. MFR: MERCK-CLEVENOT LABORATOIRES [Concomitant]

REACTIONS (3)
  - ILL-DEFINED DISORDER [None]
  - PLEURAL EFFUSION [None]
  - T-CELL LYMPHOMA [None]
